FAERS Safety Report 24219885 (Version 2)
Quarter: 2025Q1

REPORT INFORMATION
  Report Type: Report from Study
  Country: US (occurrence: US)
  Receive Date: 20240817
  Receipt Date: 20250225
  Transmission Date: 20250409
  Serious: Yes (Hospitalization, Other)
  Sender: NOVARTIS
  Company Number: US-002147023-NVSC2024US162751

PATIENT
  Sex: Male

DRUGS (1)
  1. SCEMBLIX [Suspect]
     Active Substance: ASCIMINIB HYDROCHLORIDE
     Indication: Product used for unknown indication
     Route: 065
     Dates: start: 20240510

REACTIONS (7)
  - Asthenia [Unknown]
  - Cerebrovascular accident [Unknown]
  - Disease complication [Unknown]
  - Cerebral infarction [Unknown]
  - Blindness [Unknown]
  - Diabetes mellitus [Unknown]
  - Leukaemia [Unknown]
